FAERS Safety Report 9697110 (Version 2)
Quarter: 2013Q4

REPORT INFORMATION
  Report Type: Report from Study
  Country: SK (occurrence: SK)
  Receive Date: 20131120
  Receipt Date: 20131210
  Transmission Date: 20140711
  Serious: Yes (Hospitalization)
  Sender: FDA-Public Use
  Company Number: SK-BIOGENIDEC-2013BI110190

PATIENT
  Age: 42 Year
  Sex: Male

DRUGS (1)
  1. AVONEX [Suspect]
     Indication: MULTIPLE SCLEROSIS
     Route: 030
     Dates: start: 20101029, end: 20130828

REACTIONS (1)
  - Multiple sclerosis relapse [Recovered/Resolved with Sequelae]
